FAERS Safety Report 23263832 (Version 1)
Quarter: 2023Q4

REPORT INFORMATION
  Report Type: Spontaneous
  Country: US (occurrence: None)
  Receive Date: 20231205
  Receipt Date: 20231205
  Transmission Date: 20240109
  Serious: No
  Sender: FDA-Public Use
  Company Number: None

PATIENT
  Sex: Male

DRUGS (8)
  1. RYDAPT [Suspect]
     Active Substance: MIDOSTAURIN
     Indication: Acute myeloid leukaemia
     Dosage: FREQUENCY : TWICE A DAY;?TAKE 2 CAPSULES (50 MG TOTAL) BY MOUTH 2 (TWO) TIMES A DAY WITH BREAKFAST A
     Route: 048
     Dates: start: 20231118
  2. ALPRAZOLAM [Concomitant]
     Active Substance: ALPRAZOLAM
  3. CYTARABINE [Concomitant]
     Active Substance: CYTARABINE
  4. DAUNORUBICIN [Concomitant]
     Active Substance: DAUNORUBICIN
  5. FISH OIL [Concomitant]
     Active Substance: FISH OIL
  6. FLONASE SENS [Concomitant]
  7. VITAMINS [Concomitant]
     Active Substance: VITAMINS
  8. ZYRTEC ALLGY [Concomitant]

REACTIONS (1)
  - Platelet count decreased [None]
